FAERS Safety Report 5590725-7 (Version None)
Quarter: 2008Q1

REPORT INFORMATION
  Report Type: 
  Country: None (occurrence: None)
  Receive Date: 20080110
  Receipt Date: 20071231
  Transmission Date: 20080703
  Serious: Yes (Hospitalization)
  Sender: FDA-Public Use
  Company Number: 2008BI000167

PATIENT
  Age: 64 Year
  Sex: Male

DRUGS (1)
  1. AVONEX [Suspect]
     Indication: MULTIPLE SCLEROSIS
     Dosage: 30 UG; QW; IM
     Route: 042
     Dates: start: 19990601, end: 20070630

REACTIONS (6)
  - ABASIA [None]
  - DYSSTASIA [None]
  - HAEMORRHAGE SUBCUTANEOUS [None]
  - INJECTION SITE PAIN [None]
  - INJECTION SITE REACTION [None]
  - THROMBOSIS [None]
